FAERS Safety Report 8455539-9 (Version None)
Quarter: 2012Q2

REPORT INFORMATION
  Report Type: 
  Country: None (occurrence: None)
  Receive Date: 20120621
  Receipt Date: 20120619
  Transmission Date: 20120825
  Serious: Yes (Hospitalization)
  Sender: FDA-Public Use
  Company Number: JP-PFIZER INC-2012140402

PATIENT
  Age: 62 Year
  Sex: Male
  Weight: 86 kg

DRUGS (11)
  1. NORVASC [Concomitant]
     Dosage: 10 MG, 1X/DAY
     Route: 048
     Dates: start: 20110421
  2. TEMSIROLIMUS [Suspect]
     Indication: METASTATIC RENAL CELL CARCINOMA
     Dosage: 25 MG, WEEKLY
     Route: 042
     Dates: start: 20110614, end: 20110817
  3. LANSOPRAZOLE [Concomitant]
     Dosage: 30 MG, 1X/DAY
     Route: 048
     Dates: start: 20091111
  4. ADENOSINE [Concomitant]
     Dosage: 100 MG, 3X/DAY
     Route: 048
     Dates: start: 20110809, end: 20110907
  5. DIOVAN [Concomitant]
     Dosage: 120 MG, 1X/DAY
     Route: 048
     Dates: start: 20100125
  6. VITAMEDIN CAPSULE [Concomitant]
     Dosage: UNK, 2 CAPSULES PER DAY
     Route: 048
     Dates: start: 20100131
  7. ASTOMIN [Concomitant]
     Dosage: 10 MG, 3X/DAY
     Route: 048
     Dates: start: 20110602
  8. MUCOSOLVAN [Concomitant]
     Dosage: 45 MG, 1X/DAY
     Route: 048
     Dates: start: 20091028
  9. BETAMETHASONE [Concomitant]
     Indication: PROPHYLAXIS
     Dosage: 2 MG, 1X/DAY
     Route: 048
     Dates: start: 20110705, end: 20110710
  10. CHLOR-TRIMETON [Concomitant]
     Indication: PROPHYLAXIS
     Dosage: 10 MG, WEEKLY (SINGLE)
     Route: 042
     Dates: start: 20110614
  11. MUCODYNE [Concomitant]
     Dosage: 500 MG, 3X/DAY
     Route: 048
     Dates: start: 20110809, end: 20110907

REACTIONS (1)
  - ENTEROCOLITIS [None]
